FAERS Safety Report 11749346 (Version 8)
Quarter: 2017Q1

REPORT INFORMATION
  Report Type: Spontaneous
  Country: US (occurrence: US)
  Receive Date: 20151118
  Receipt Date: 20170116
  Transmission Date: 20170428
  Serious: Yes (Hospitalization, Congenital Anomaly, Other)
  Sender: FDA-Public Use
  Company Number: PHEH2015US023842

PATIENT
  Age: 17 Day
  Sex: Male

DRUGS (4)
  1. ONDANSETRONE TEVA [Suspect]
     Active Substance: ONDANSETRON HYDROCHLORIDE
     Indication: FOETAL EXPOSURE DURING PREGNANCY
     Dosage: MOTHER^S DOSE: 8 MG, UNK
     Route: 064
  2. ONDANSETRON HYDROCHLORIDE. [Suspect]
     Active Substance: ONDANSETRON HYDROCHLORIDE
     Indication: FOETAL EXPOSURE DURING PREGNANCY
     Route: 064
  3. ONDANSETRON DR REDDY [Suspect]
     Active Substance: ONDANSETRON
     Indication: FOETAL EXPOSURE DURING PREGNANCY
     Dosage: MOTHER^S DOSE: 8 MG, PRN
     Route: 064
  4. ZOFRAN [Suspect]
     Active Substance: ONDANSETRON HYDROCHLORIDE
     Indication: FOETAL EXPOSURE DURING PREGNANCY
     Dosage: MOTHER^S DOSE: 8 MG, PRN
     Route: 064

REACTIONS (21)
  - Cleft palate [Unknown]
  - Cardiomegaly [Unknown]
  - Anhedonia [Unknown]
  - Chordee [Unknown]
  - Emotional distress [Unknown]
  - Microtia [Unknown]
  - Neonatal respiratory distress syndrome [Recovered/Resolved]
  - Anxiety [Unknown]
  - Cleft lip [Unknown]
  - Congenital anomaly [Unknown]
  - Congenital umbilical hernia [Unknown]
  - Cardiac murmur [Unknown]
  - Developmental delay [Unknown]
  - Deafness [Unknown]
  - Eye discharge [Unknown]
  - Otitis media chronic [Unknown]
  - Foetal exposure during pregnancy [Unknown]
  - Otorrhoea [Unknown]
  - Premature baby [Unknown]
  - Injury [Unknown]
  - Pain [Unknown]

NARRATIVE: CASE EVENT DATE: 20120305
